FAERS Safety Report 9022697 (Version 1)
Quarter: 2013Q1

REPORT INFORMATION
  Report Type: Spontaneous
  Country: US (occurrence: US)
  Receive Date: 20130120
  Receipt Date: 20130120
  Transmission Date: 20140127
  Serious: No
  Sender: FDA-Public Use
  Company Number: US-ALLERGAN-1218078US

PATIENT
  Sex: Female

DRUGS (11)
  1. BOTOX? [Suspect]
     Indication: MIGRAINE
     Dosage: 185 UNITS, SINGLE
     Dates: start: 20121211, end: 20121211
  2. VERAPAMIL [Concomitant]
     Indication: PRODUCT USED FOR UNKNOWN INDICATION
     Dosage: 180 MG, QHS
     Route: 048
  3. NEURONTIN [Concomitant]
     Indication: MIGRAINE
     Dosage: 300 MG, TID
     Route: 048
  4. TOPAMAX [Concomitant]
     Indication: PRODUCT USED FOR UNKNOWN INDICATION
     Dosage: 100 MG, QHS
     Route: 048
  5. XANAX [Concomitant]
     Indication: PRODUCT USED FOR UNKNOWN INDICATION
     Dosage: 0.25 MG, UNK
     Route: 048
  6. FIORINAL                           /00090401/ [Concomitant]
     Indication: PRODUCT USED FOR UNKNOWN INDICATION
     Dosage: UNK
     Route: 048
  7. MULTI-VIT [Concomitant]
     Indication: SUPPLEMENTATION THERAPY
     Dosage: UNK
     Route: 048
  8. VITAMIN B2 [Concomitant]
     Indication: SUPPLEMENTATION THERAPY
     Dosage: UNK
     Route: 048
  9. VITAMIN B6 [Concomitant]
     Indication: SUPPLEMENTATION THERAPY
     Dosage: UNK
     Route: 048
  10. VITAMIN B12                        /00056201/ [Concomitant]
     Indication: SUPPLEMENTATION THERAPY
     Dosage: UNK
     Route: 048
  11. BUTTERBUR NOS [Concomitant]
     Indication: SUPPLEMENTATION THERAPY
     Dosage: UNK

REACTIONS (2)
  - Neck pain [Unknown]
  - Facial paresis [Unknown]
